FAERS Safety Report 10902091 (Version 1)
Quarter: 2015Q1

REPORT INFORMATION
  Report Type: Spontaneous
  Country: DE (occurrence: DE)
  Receive Date: 20150310
  Receipt Date: 20150310
  Transmission Date: 20150721
  Serious: Yes (Hospitalization, Other)
  Sender: FDA-Public Use
  Company Number: DE-TEVA-545611GER

PATIENT
  Age: 20 Year
  Sex: Female

DRUGS (1)
  1. COPAXONE [Suspect]
     Active Substance: GLATIRAMER ACETATE
     Indication: MULTIPLE SCLEROSIS
     Dates: start: 201501

REACTIONS (3)
  - Nuclear magnetic resonance imaging abnormal [Unknown]
  - Hypoaesthesia [Recovering/Resolving]
  - Fear of disease [Unknown]

NARRATIVE: CASE EVENT DATE: 201502
